FAERS Safety Report 5186508-2 (Version None)
Quarter: 2006Q4

REPORT INFORMATION
  Report Type: 
  Country: None (occurrence: None)
  Receive Date: 20061213
  Receipt Date: 20061127
  Transmission Date: 20070319
  Serious: Yes (Other)
  Sender: FDA-Public Use
  Company Number: ACO_0293_2006

PATIENT
  Age: 80 Year
  Sex: Female

DRUGS (11)
  1. TERNELIN [Suspect]
     Dosage: 3 TAB QDAY PO
     Route: 048
  2. PANALDINE [Concomitant]
  3. ASPIRIN [Concomitant]
  4. BLOPRESS [Concomitant]
  5. AMARYL [Concomitant]
  6. BASEN [Concomitant]
  7. METFORMIN HCL [Concomitant]
  8. LENDORMIN [Concomitant]
  9. MEDICON [Concomitant]
  10. HORIZON [Concomitant]
  11. SELBEX [Concomitant]

REACTIONS (1)
  - INAPPROPRIATE ANTIDIURETIC HORMONE SECRETION [None]
